FAERS Safety Report 5733674-3 (Version None)
Quarter: 2008Q2

REPORT INFORMATION
  Report Type: 
  Country: None (occurrence: None)
  Receive Date: 20080509
  Receipt Date: 20080404
  Transmission Date: 20081010
  Serious: No
  Sender: FDA-Public Use
  Company Number: A0714334A

PATIENT
  Age: 85 Year
  Sex: Female

DRUGS (1)
  1. ALTABAX [Suspect]
     Route: 061

REACTIONS (1)
  - APPLICATION SITE RASH [None]
